FAERS Safety Report 9442916 (Version 1)
Quarter: 2013Q3

REPORT INFORMATION
  Report Type: Spontaneous
  Country: FI (occurrence: FI)
  Receive Date: 20130806
  Receipt Date: 20130806
  Transmission Date: 20140515
  Serious: Yes (Hospitalization)
  Sender: FDA-Public Use
  Company Number: FI-ASTRAZENECA-2013SE58739

PATIENT
  Age: 9672 Day
  Sex: Male

DRUGS (3)
  1. SEROQUEL PROLONG [Suspect]
     Indication: HISTRIONIC PERSONALITY DISORDER
     Route: 048
     Dates: start: 20081121, end: 20130603
  2. SEROQUEL PROLONG [Suspect]
     Indication: DEPRESSION
     Route: 048
     Dates: start: 20081121, end: 20130603
  3. CYMBALTA [Concomitant]
     Indication: DEPRESSION
     Route: 048
     Dates: start: 20081121

REACTIONS (3)
  - Influenza like illness [Recovering/Resolving]
  - Fatigue [Recovering/Resolving]
  - Neutropenia [Recovering/Resolving]
